FAERS Safety Report 21050163 (Version 1)
Quarter: 2022Q3

REPORT INFORMATION
  Report Type: Spontaneous
  Country: US (occurrence: US)
  Receive Date: 20220706
  Receipt Date: 20220706
  Transmission Date: 20221026
  Serious: No
  Sender: FDA-Public Use
  Company Number: US-AMGEN-USASP2022110982

PATIENT
  Age: 5 Year
  Sex: Male

DRUGS (1)
  1. BEVACIZUMAB [Suspect]
     Active Substance: BEVACIZUMAB
     Indication: Glioblastoma
     Dosage: 10 MONTHS COURSE
     Route: 065

REACTIONS (4)
  - Drug effective for unapproved indication [Unknown]
  - Hypopituitarism [Unknown]
  - Off label use [Unknown]
  - Drug ineffective for unapproved indication [Unknown]
